FAERS Safety Report 17759930 (Version 1)
Quarter: 2020Q2

REPORT INFORMATION
  Report Type: Spontaneous
  Country: FR (occurrence: FR)
  Receive Date: 20200508
  Receipt Date: 20200508
  Transmission Date: 20200714
  Serious: Yes (Death, Other)
  Sender: FDA-Public Use
  Company Number: FR-SUN PHARMACEUTICAL INDUSTRIES LTD-2020R1-245854

PATIENT
  Age: 54 Year
  Sex: Male

DRUGS (1)
  1. COTRIMOXAZOLE [Suspect]
     Active Substance: SULFAMETHOXAZOLE\TRIMETHOPRIM
     Indication: BURKHOLDERIA PSEUDOMALLEI INFECTION
     Dosage: UNK, BID (320/1,600 MG 2X/D
     Route: 048

REACTIONS (2)
  - Treatment noncompliance [Unknown]
  - Rash [Unknown]
